FAERS Safety Report 16171124 (Version 1)
Quarter: 2019Q2

REPORT INFORMATION
  Report Type: Spontaneous
  Country: FR (occurrence: FR)
  Receive Date: 20190408
  Receipt Date: 20190408
  Transmission Date: 20190711
  Serious: Yes (Other)
  Sender: FDA-Public Use
  Company Number: FR-PURDUE PHARMA-GBR-2019-0065575

PATIENT
  Age: 76 Year
  Sex: Female
  Weight: 64.6 kg

DRUGS (12)
  1. EUPRESSYL                          /00631801/ [Concomitant]
     Active Substance: URAPIDIL
  2. LEVOTHYROX [Concomitant]
     Active Substance: LEVOTHYROXINE
  3. LINEZOLID. [Suspect]
     Active Substance: LINEZOLID
     Indication: INFECTION PROPHYLAXIS
     Dosage: 1200 MG, DAILY
     Route: 042
     Dates: start: 20190222, end: 20190301
  4. PIPERACILLIN AND TAZOBACTAM [Suspect]
     Active Substance: PIPERACILLIN SODIUM\TAZOBACTAM SODIUM
     Indication: INFECTION PROPHYLAXIS
     Dosage: 4500 MG, DAILY [4G + 500MG]
     Route: 042
     Dates: start: 20190222, end: 20190227
  5. BICARBONATE SODIUM [Concomitant]
     Active Substance: SODIUM BICARBONATE
  6. OXYNORM [Suspect]
     Active Substance: OXYCODONE HYDROCHLORIDE
     Indication: PAIN
     Dosage: UNK
     Route: 042
     Dates: start: 20190222, end: 20190227
  7. ZOLOFT [Concomitant]
     Active Substance: SERTRALINE HYDROCHLORIDE
  8. FLUCONAZOL [Suspect]
     Active Substance: FLUCONAZOLE
     Indication: ANTIFUNGAL PROPHYLAXIS
     Dosage: 100 MG, DAILY
     Route: 048
     Dates: start: 20190225, end: 20190227
  9. CORDARONE [Concomitant]
     Active Substance: AMIODARONE HYDROCHLORIDE
  10. XARELTO [Suspect]
     Active Substance: RIVAROXABAN
     Indication: ATRIAL FIBRILLATION
     Dosage: 20 MG, DAILY
     Route: 048
     Dates: start: 20180531, end: 20190227
  11. GRANOCYTE                          /06441001/ [Concomitant]
  12. PANTOPRAZOLE [Concomitant]
     Active Substance: PANTOPRAZOLE

REACTIONS (3)
  - Encephalopathy [Recovered/Resolved]
  - Hallucination [Recovered/Resolved]
  - Prothrombin time shortened [Recovered/Resolved]

NARRATIVE: CASE EVENT DATE: 20190225
